FAERS Safety Report 23902677 (Version 1)
Quarter: 2024Q2

REPORT INFORMATION
  Report Type: Spontaneous
  Country: CN (occurrence: CN)
  Receive Date: 20240527
  Receipt Date: 20240527
  Transmission Date: 20240716
  Serious: Yes (Hospitalization)
  Sender: FDA-Public Use
  Company Number: CN-BEIGENE-BGN-2024-007696

PATIENT

DRUGS (8)
  1. TISLELIZUMAB [Suspect]
     Active Substance: TISLELIZUMAB
     Indication: Throat cancer
     Dosage: 200 MILLIGRAM, Q3WK
     Route: 041
     Dates: start: 20240429
  2. PACLITAXEL [Suspect]
     Active Substance: PACLITAXEL
     Indication: Throat cancer
     Dosage: 400 MILLIGRAM, Q3WK
     Route: 041
     Dates: start: 20240326
  3. PACLITAXEL [Suspect]
     Active Substance: PACLITAXEL
     Dosage: 400 MILLIGRAM, Q3WK
     Route: 041
     Dates: start: 20240429
  4. NEDAPLATIN [Suspect]
     Active Substance: NEDAPLATIN
     Indication: Throat cancer
     Dosage: 120 MILLIGRAM, Q3WK
     Route: 041
     Dates: start: 20240326
  5. NEDAPLATIN [Suspect]
     Active Substance: NEDAPLATIN
     Dosage: 120 MILLIGRAM, Q3WK
     Route: 041
     Dates: start: 20240429
  6. SODIUM CHLORIDE [Concomitant]
     Active Substance: SODIUM CHLORIDE
     Indication: Vehicle solution use
     Dosage: 80 MILLILITER, Q3WK
     Route: 041
     Dates: start: 20240326
  7. SODIUM CHLORIDE [Concomitant]
     Active Substance: SODIUM CHLORIDE
     Dosage: 500 MILLILITER, Q3WK
     Route: 041
     Dates: start: 20240326
  8. SODIUM CHLORIDE [Concomitant]
     Active Substance: SODIUM CHLORIDE
     Dosage: 250 MILLILITER, Q3WK
     Route: 041
     Dates: start: 20240429

REACTIONS (3)
  - Hepatic function abnormal [Not Recovered/Not Resolved]
  - Myelosuppression [Not Recovered/Not Resolved]
  - Pyrexia [Not Recovered/Not Resolved]

NARRATIVE: CASE EVENT DATE: 20240504
